FAERS Safety Report 4878418-2 (Version None)
Quarter: 2005Q4

REPORT INFORMATION
  Report Type: 
  Country: None (occurrence: None)
  Receive Date: 20051213
  Receipt Date: 20041019
  Transmission Date: 20060501
  Serious: Yes (Hospitalization)
  Sender: FDA-Public Use
  Company Number: 2001053008US

PATIENT
  Sex: Male
  Weight: 83.9 kg

DRUGS (7)
  1. XANAX [Suspect]
     Indication: AGORAPHOBIA
     Dosage: 3-5 MG, QD
  2. XANAX XR [Suspect]
     Indication: AGORAPHOBIA
     Dosage: 1 MG, BID, ORAL
     Route: 048
  3. PROPRANOLOL [Concomitant]
  4. TRICOR [Concomitant]
  5. VALIUM [Concomitant]
  6. ATIVAN [Concomitant]
  7. KLONOPIN [Concomitant]

REACTIONS (6)
  - AMNESIA [None]
  - CONVULSION [None]
  - DECREASED APPETITE [None]
  - DRUG INEFFECTIVE [None]
  - MIGRAINE [None]
  - WEIGHT DECREASED [None]
